FAERS Safety Report 7553504-7 (Version None)
Quarter: 2011Q2

REPORT INFORMATION
  Report Type: 
  Country: None (occurrence: None)
  Receive Date: 20110617
  Receipt Date: 20110531
  Transmission Date: 20111010
  Serious: Yes (Other)
  Sender: FDA-Public Use
  Company Number: US-BAYER-201016337NA

PATIENT
  Age: 51 Year
  Sex: Female
  Weight: 104 kg

DRUGS (7)
  1. YAZ [Suspect]
     Indication: PRODUCT USED FOR UNKNOWN INDICATION
     Dosage: UNK UNK, UNK
     Route: 048
     Dates: start: 20080201, end: 20080301
  2. DICLOXACILLIN [Concomitant]
     Indication: CELLULITIS
     Dosage: 500 MG, UNK
     Route: 048
     Dates: start: 20080111
  3. ATENOLOL [Concomitant]
     Indication: HYPERTENSION
  4. SEPTRA [Concomitant]
     Indication: CELLULITIS
  5. NAPROSYN [Concomitant]
     Indication: ANALGESIC THERAPY
  6. ALESSE [Concomitant]
  7. YASMIN [Suspect]
     Indication: PRODUCT USED FOR UNKNOWN INDICATION
     Dosage: UNK UNK, UNK
     Route: 048
     Dates: start: 20071201, end: 20080201

REACTIONS (1)
  - DEEP VEIN THROMBOSIS [None]
